FAERS Safety Report 8529614-4 (Version None)
Quarter: 2012Q3

REPORT INFORMATION
  Report Type: 
  Country: None (occurrence: None)
  Receive Date: 20120723
  Receipt Date: 20120709
  Transmission Date: 20120928
  Serious: No
  Sender: FDA-Public Use
  Company Number: JP-JNJFOC-20120706277

PATIENT
  Age: 5 Year

DRUGS (2)
  1. FENTANYL-100 [Suspect]
     Indication: CANCER PAIN
     Dosage: 100UG/HR
     Route: 062
  2. FENTANYL-100 [Suspect]
     Dosage: 200UG/HR
     Route: 062

REACTIONS (1)
  - HAEMORRHAGE SUBCUTANEOUS [None]
